FAERS Safety Report 8408253-X (Version None)
Quarter: 2012Q2

REPORT INFORMATION
  Report Type: 
  Country: None (occurrence: None)
  Receive Date: 20120529
  Receipt Date: 20050907
  Transmission Date: 20120825
  Serious: Yes (Other)
  Sender: FDA-Public Use
  Company Number: 02100-JPN-05-0478

PATIENT
  Age: 86 Year
  Sex: Male

DRUGS (7)
  1. PLETAL [Suspect]
     Indication: CEREBRAL INFARCTION
     Dosage: 100 MG, BID, ORAL
     Route: 048
     Dates: start: 20040805, end: 20041030
  2. SELBEX (TEPRENONE) [Concomitant]
  3. AZUCURENIN S (AZULENE SULFONATE SODIUM/L-GLUTAMINE) [Concomitant]
  4. LEVOTHYROXINE SODIUM [Concomitant]
  5. BIOSMIN (LACTOBACILLUS BIFIDUS, LYOPHILIZED) [Concomitant]
  6. BUP-4 (PROPIVERINE HYDROCHLORIDE) [Concomitant]
  7. DIGOXIN [Concomitant]

REACTIONS (3)
  - SUBDURAL HAEMATOMA [None]
  - HEAD INJURY [None]
  - FALL [None]
